FAERS Safety Report 10113581 (Version 1)
Quarter: 2014Q2

REPORT INFORMATION
  Report Type: Spontaneous
  Country: US (occurrence: US)
  Receive Date: 20140425
  Receipt Date: 20140425
  Transmission Date: 20141212
  Serious: No
  Sender: FDA-Public Use
  Company Number: US-BAYER-2014-061630

PATIENT
  Age: 12 Year
  Sex: Male
  Weight: 63 kg

DRUGS (2)
  1. ALEVE CAPLET [Suspect]
     Indication: BACK PAIN
     Dosage: UNK
     Route: 048
  2. ALEVE CAPLET [Suspect]
     Indication: HEADACHE

REACTIONS (1)
  - Drug ineffective [None]
